FAERS Safety Report 24618014 (Version 3)
Quarter: 2024Q4

REPORT INFORMATION
  Report Type: Report from Study
  Country: US (occurrence: US)
  Receive Date: 20241114
  Receipt Date: 20241202
  Transmission Date: 20250114
  Serious: Yes (Other)
  Sender: ROCHE
  Company Number: US-ROCHE-10000126939

PATIENT
  Age: 75 Year
  Sex: Male
  Weight: 78.47 kg

DRUGS (14)
  1. ESBRIET [Suspect]
     Active Substance: PIRFENIDONE
     Indication: Interstitial lung disease
     Dosage: TAKE 1 TABLET BY MOUTH 3 TIMES A DAY WITH MEALS
     Route: 048
     Dates: start: 2022
  2. ATORVASTATIN [Concomitant]
     Active Substance: ATORVASTATIN
     Dosage: TAKES IN THE MORNING
  3. BISOPROLOL [Concomitant]
     Active Substance: BISOPROLOL
  4. BUPROPION [Concomitant]
     Active Substance: BUPROPION
  5. PLAVIX [Concomitant]
     Active Substance: CLOPIDOGREL BISULFATE
  6. ISOSORBIDE MONONITRATE [Concomitant]
     Active Substance: ISOSORBIDE MONONITRATE
     Dosage: TAKES IN THE MORNING
  7. LISINOPRIL [Concomitant]
     Active Substance: LISINOPRIL
  8. RANOLAZINE [Concomitant]
     Active Substance: RANOLAZINE
  9. VITAMIN C [Concomitant]
     Active Substance: ASCORBIC ACID
     Dosage: ONE TABLET EVERY MORNING AS NEEDED
  10. VITAMIN D3 [Concomitant]
     Active Substance: CHOLECALCIFEROL
     Dosage: ONE CAPSULE EVERY DAY AS NEEDED
     Route: 048
  11. IBUPROFEN [Concomitant]
     Active Substance: IBUPROFEN
     Dosage: EVERY FOUR HOURS AS NEEDED
  12. POTASSIUM GLUCONATE [Concomitant]
     Active Substance: POTASSIUM GLUCONATE
     Dosage: ONE TABLET EVERY DAY AS NEEDED
  13. VITAMIN E [Concomitant]
     Active Substance: .ALPHA.-TOCOPHEROL
     Dosage: ONE CAPSULE DAILY AS NEEDED
  14. ZINC CITRATE [Concomitant]
     Active Substance: ZINC CITRATE
     Dosage: ONE CAPSULE EVERY MORNING AS NEEDED

REACTIONS (4)
  - Pulmonary fibrosis [Unknown]
  - Ill-defined disorder [Unknown]
  - Weight decreased [Unknown]
  - Decreased appetite [Not Recovered/Not Resolved]
